FAERS Safety Report 8401411-X (Version None)
Quarter: 2012Q2

REPORT INFORMATION
  Report Type: 
  Country: None (occurrence: None)
  Receive Date: 20120601
  Receipt Date: 20120529
  Transmission Date: 20120825
  Serious: Yes (Hospitalization)
  Sender: FDA-Public Use
  Company Number: PHHO2012SG008131

PATIENT
  Age: 59 Year
  Sex: Male
  Weight: 62.7 kg

DRUGS (7)
  1. RITUXIMAB [Suspect]
     Dosage: 375 MG/M2, UNK
     Dates: start: 20100526
  2. GEMCITABINE [Suspect]
     Indication: DIFFUSE LARGE B-CELL LYMPHOMA
     Dosage: 500 MG/M2, UNK
     Dates: start: 20120526
  3. DEXAMETHASONE [Suspect]
     Dosage: 40 MG X4 DAYS
     Dates: start: 20120526
  4. CISPLATIN [Suspect]
     Indication: DIFFUSE LARGE B-CELL LYMPHOMA
     Dosage: 37.5 MG/M2, UNK
     Dates: start: 20100526
  5. FAMOTIDINE [Concomitant]
     Dosage: UNK
     Dates: start: 20100426
  6. ACYCLOVIR [Concomitant]
     Dosage: UNK
     Dates: start: 20100426
  7. MONOCLONAL ANTIBODIES [Suspect]
     Indication: DIFFUSE LARGE B-CELL LYMPHOMA
     Dosage: 0.6 MG/M2, UNK
     Dates: start: 20120526

REACTIONS (1)
  - THROMBOCYTOPENIA [None]
